FAERS Safety Report 26110730 (Version 1)
Quarter: 2025Q4

REPORT INFORMATION
  Report Type: Spontaneous
  Country: US (occurrence: US)
  Receive Date: 20251202
  Receipt Date: 20251202
  Transmission Date: 20260117
  Serious: Yes (Other)
  Sender: CATALYST PHARMA
  Company Number: US-CATALYST PHARMACEUTICALS-US-CATA-25-01824

PATIENT
  Age: 14 Year
  Sex: Male
  Weight: 38.549 kg

DRUGS (32)
  1. AGAMREE [Suspect]
     Active Substance: VAMOROLONE
     Indication: Duchenne muscular dystrophy
     Dosage: 5.5 ML ONCE DAILY
     Dates: start: 20240605
  2. TRIAMCINOLONE [Concomitant]
     Active Substance: TRIAMCINOLONE
     Indication: Gastrostomy tube site complication
     Dosage: AS NEEDED
     Route: 061
  3. MORPHINE SULFATE [Concomitant]
     Active Substance: MORPHINE SULFATE
     Indication: Pain
     Dosage: 1.5 ML AS NEEDED
     Route: 065
  4. FAMOTIDINE [Concomitant]
     Active Substance: FAMOTIDINE
     Indication: Gastrointestinal disorder prophylaxis
     Dosage: 20 MG TABLET DAILY
     Route: 065
  5. HYDROCORTISONE [Concomitant]
     Active Substance: HYDROCORTISONE
     Indication: Duchenne muscular dystrophy
     Dosage: 5 MG FIVE TIMES A WEEK
     Route: 065
  6. PREDNISONE [Concomitant]
     Active Substance: PREDNISONE
     Indication: Duchenne muscular dystrophy
     Dosage: 10 MG TWO TIMES A WEEK
     Route: 065
  7. METHOTREXATE SODIUM [Concomitant]
     Active Substance: METHOTREXATE SODIUM
     Indication: Leukaemia
     Dosage: 22.5 MG WEEKLY
     Route: 065
  8. MERCAPTOPURINE [Concomitant]
     Active Substance: MERCAPTOPURINE
     Indication: Leukaemia
     Dosage: 100 MG DAILY
     Route: 065
  9. DRONABINOL [Concomitant]
     Active Substance: DRONABINOL
     Indication: Nausea
     Dosage: 2.5 MG DAILY
     Route: 065
  10. DRONABINOL [Concomitant]
     Active Substance: DRONABINOL
     Indication: Vomiting
  11. DICLOFENAC SODIUM [Concomitant]
     Active Substance: DICLOFENAC SODIUM
     Indication: Pain in extremity
     Dosage: AS NEEDED
     Route: 065
  12. VITAMIN D [Concomitant]
     Active Substance: VITAMIN D NOS
     Indication: Osteoporosis
     Dosage: 50 MCG DAILY
     Route: 065
  13. FLOVENT [Concomitant]
     Active Substance: FLUTICASONE PROPIONATE
     Indication: Asthma
     Dosage: 1 SPRAY AS NEEDED
     Route: 055
  14. ACYCLOVIR [Concomitant]
     Active Substance: ACYCLOVIR
     Indication: Oral pain
     Dosage: 18 ML AS NEEDED
     Route: 048
  15. LIDOCAINE [Concomitant]
     Active Substance: LIDOCAINE
     Indication: Pain
     Dosage: AS NEEDED
     Route: 065
  16. LIDOCAINE AND PRILOCAINE [Concomitant]
     Active Substance: LIDOCAINE\PRILOCAINE
     Indication: Catheter site pain
     Dosage: AS NEEDED
     Route: 061
  17. FLUTICASONE [Concomitant]
     Active Substance: FLUTICASONE
     Indication: Asthma
     Dosage: ONE SPRAY AS NEEDED
     Route: 045
  18. FLUTICASONE [Concomitant]
     Active Substance: FLUTICASONE
     Indication: Hypersensitivity
  19. LEVALBUTEROL [Concomitant]
     Active Substance: LEVALBUTEROL
     Indication: Illness
     Dosage: 3 ML AS NEEDED
     Route: 055
  20. GRANISETRON [Concomitant]
     Active Substance: GRANISETRON
     Indication: Nausea
     Dosage: 1 MG AS NEEDED
     Route: 065
  21. GRANISETRON [Concomitant]
     Active Substance: GRANISETRON
     Indication: Vomiting
  22. PATADAY [Concomitant]
     Active Substance: OLOPATADINE HYDROCHLORIDE
     Indication: Hypersensitivity
     Dosage: DAILY
     Route: 047
  23. SOLU-CORTEF [Concomitant]
     Active Substance: HYDROCORTISONE SODIUM SUCCINATE
     Indication: Adrenal insufficiency
     Dosage: AS NEEDED
     Route: 065
  24. POLYETHYLENE GLYCOL [Concomitant]
     Active Substance: POLYETHYLENE GLYCOL
     Indication: Constipation
     Dosage: ONE PACKET AS NEEDED
     Route: 065
  25. CETIRIZINE [Concomitant]
     Active Substance: CETIRIZINE HYDROCHLORIDE
     Indication: Hypersensitivity
     Dosage: 5 ML AS NEEDED
     Route: 065
  26. SULFAMETHOXAZOLE\TRIMETHOPRIM [Concomitant]
     Active Substance: SULFAMETHOXAZOLE\TRIMETHOPRIM
     Indication: Medical device site infection
     Dosage: 10 ML TWO TIMES A WEEK
     Route: 065
  27. GABAPENTIN [Concomitant]
     Active Substance: GABAPENTIN
     Indication: Pain
     Dosage: 300 MG DAILY
     Route: 065
  28. TUMS [Concomitant]
     Active Substance: CALCIUM CARBONATE
     Indication: Osteoporosis
     Dosage: 1 DAILY
     Route: 065
  29. ZOLEDRONIC ACID [Concomitant]
     Active Substance: ZOLEDRONIC ACID
     Indication: Osteoporosis
     Dosage: EVERY SIX MONTHS
     Route: 065
  30. BENADRYL [Concomitant]
     Active Substance: DIPHENHYDRAMINE HYDROCHLORIDE
     Indication: Rash
     Dosage: AS NEEDED
     Route: 065
  31. BENADRYL [Concomitant]
     Active Substance: DIPHENHYDRAMINE HYDROCHLORIDE
     Indication: Urticaria
  32. AMOXICILLIN [Concomitant]
     Active Substance: AMOXICILLIN
     Indication: Ear infection
     Dosage: TWICE DAILY
     Route: 048

REACTIONS (1)
  - Central venous catheterisation [Unknown]

NARRATIVE: CASE EVENT DATE: 20251119
